FAERS Safety Report 23795000 (Version 1)
Quarter: 2024Q2

REPORT INFORMATION
  Report Type: Spontaneous
  Country: US (occurrence: None)
  Receive Date: 20240426
  Receipt Date: 20240426
  Transmission Date: 20240716
  Serious: Yes (Disabling)
  Sender: FDA-Public Use
  Company Number: None

PATIENT
  Age: 67 Year
  Sex: Female
  Weight: 69.75 kg

DRUGS (10)
  1. ALENDRONATE SODIUM [Suspect]
     Active Substance: ALENDRONATE SODIUM
     Indication: Osteoporosis
     Dosage: OTHER QUANTITY : 1 TABLET(S);?FREQUENCY : WEEKLY;?
     Route: 048
     Dates: start: 20231227, end: 20240401
  2. ATORVASTATIN [Concomitant]
     Active Substance: ATORVASTATIN
  3. OLMESARTAN [Concomitant]
     Active Substance: OLMESARTAN
  4. LEVOFLOXACIN [Concomitant]
     Active Substance: LEVOFLOXACIN
  5. Vitamins D [Concomitant]
  6. VITAMIN B6 [Concomitant]
     Active Substance: PYRIDOXINE HYDROCHLORIDE
  7. Vitamins B-12 [Concomitant]
  8. FOLATE SODIUM [Concomitant]
     Active Substance: FOLATE SODIUM
  9. VITAMIN C [Concomitant]
     Active Substance: ASCORBIC ACID
  10. FLAXSEED [Concomitant]
     Active Substance: FLAX SEED

REACTIONS (3)
  - Muscle spasms [None]
  - Myalgia [None]
  - Cellulitis [None]

NARRATIVE: CASE EVENT DATE: 20240401
